FAERS Safety Report 12709079 (Version 2)
Quarter: 2019Q1

REPORT INFORMATION
  Report Type: Spontaneous
  Country: US (occurrence: US)
  Receive Date: 20160901
  Receipt Date: 20190320
  Transmission Date: 20190417
  Serious: No
  Sender: FDA-Public Use
  Company Number: US-JAZZ-2016-US-008317

PATIENT
  Sex: Female

DRUGS (10)
  1. TYLENOL WITH CODEINE [Suspect]
     Active Substance: ACETAMINOPHEN\CODEINE PHOSPHATE
     Indication: PRODUCT USED FOR UNKNOWN INDICATION
  2. ALPRAZOLAM. [Concomitant]
     Active Substance: ALPRAZOLAM
  3. KLONOPIN [Suspect]
     Active Substance: CLONAZEPAM
     Indication: PRODUCT USED FOR UNKNOWN INDICATION
  4. AMBIEN [Suspect]
     Active Substance: ZOLPIDEM TARTRATE
     Indication: PRODUCT USED FOR UNKNOWN INDICATION
     Dosage: UNK
  5. XYREM [Suspect]
     Active Substance: SODIUM OXYBATE
     Dosage: 4.5 G, BID
     Route: 048
     Dates: start: 201501
  6. HYDROCODONE BITARTRATE AND ACETAMINOPHEN [Concomitant]
     Active Substance: ACETAMINOPHEN\HYDROCODONE BITARTRATE
  7. XYREM [Suspect]
     Active Substance: SODIUM OXYBATE
     Indication: FIBROMYALGIA
     Dosage: 4.5 G, BID
     Route: 048
     Dates: start: 200706, end: 2013
  8. ZOLPIDEM TARTRATE. [Concomitant]
     Active Substance: ZOLPIDEM TARTRATE
  9. T3 [Concomitant]
     Active Substance: LIOTHYRONINE SODIUM
  10. CLONAZEPAM. [Concomitant]
     Active Substance: CLONAZEPAM

REACTIONS (9)
  - Gastrointestinal disorder [Unknown]
  - Panic attack [Unknown]
  - Abdominal discomfort [Unknown]
  - Poor quality sleep [Unknown]
  - Unevaluable event [Unknown]
  - Drug ineffective [Unknown]
  - Hallucination [Unknown]
  - Abdominal distension [Unknown]
  - Flatulence [Unknown]
